FAERS Safety Report 5319538-8 (Version None)
Quarter: 2007Q2

REPORT INFORMATION
  Report Type: 
  Country: None (occurrence: None)
  Receive Date: 20070508
  Receipt Date: 20070426
  Transmission Date: 20071010
  Serious: Yes (Other)
  Sender: FDA-Public Use
  Company Number: US-PFIZER INC-2007034669

PATIENT
  Sex: Male
  Weight: 90 kg

DRUGS (3)
  1. CHANTIX [Suspect]
     Indication: SMOKING CESSATION THERAPY
     Dosage: FREQ:DAILY
     Dates: start: 20070201, end: 20070401
  2. AMBIEN [Concomitant]
     Indication: SLEEP DISORDER
  3. XANAX [Concomitant]
     Indication: PANIC ATTACK

REACTIONS (3)
  - CAROTID ARTERY OCCLUSION [None]
  - SEPTOPLASTY [None]
  - STRESS [None]
